FAERS Safety Report 5974911-X (Version None)
Quarter: 2008Q4

REPORT INFORMATION
  Report Type: 
  Country: None (occurrence: None)
  Receive Date: 20081202
  Receipt Date: 20081124
  Transmission Date: 20090506
  Serious: Yes (Other)
  Sender: FDA-Public Use
  Company Number: FR-PFIZER INC-2008100759

PATIENT
  Sex: Male

DRUGS (8)
  1. SALAZOPYRINE [Suspect]
     Route: 048
     Dates: start: 20040101, end: 20080925
  2. SPECIAFOLDINE [Suspect]
     Route: 048
     Dates: start: 20080526, end: 20080925
  3. PREDNISONE TAB [Concomitant]
     Route: 048
  4. ATENOLOL [Concomitant]
     Route: 048
  5. CAPTOPRIL [Concomitant]
     Route: 048
  6. CALCIUM CARBONATE [Concomitant]
     Route: 048
  7. ACETYLSALICYLATE LYSINE [Concomitant]
     Route: 048
  8. TIANEPTINE [Concomitant]
     Route: 048

REACTIONS (2)
  - LEUKOPENIA [None]
  - NORMOCHROMIC NORMOCYTIC ANAEMIA [None]
